FAERS Safety Report 20502400 (Version 1)
Quarter: 2022Q1

REPORT INFORMATION
  Report Type: Spontaneous
  Country: US (occurrence: None)
  Receive Date: 20220219
  Receipt Date: 20220219
  Transmission Date: 20220424
  Serious: Yes (Other)
  Sender: FDA-Public Use
  Company Number: None

PATIENT
  Age: 64 Year
  Sex: Male
  Weight: 112.5 kg

DRUGS (59)
  1. BUPRENORPHINE [Suspect]
     Active Substance: BUPRENORPHINE
     Indication: Small fibre neuropathy
     Dosage: 2 TABLETS  DAILY;?
     Route: 060
  2. AMITRIPTYLINE [Concomitant]
     Active Substance: AMITRIPTYLINE
  3. ATORVASTATIN [Concomitant]
     Active Substance: ATORVASTATIN
  4. DULOXETINE [Concomitant]
     Active Substance: DULOXETINE
  5. HYDROCORTISONE [Concomitant]
     Active Substance: HYDROCORTISONE
  6. LEVOTHYROXINE [Concomitant]
     Active Substance: LEVOTHYROXINE
  7. LIOTHYRONINE [Concomitant]
     Active Substance: LIOTHYRONINE
  8. LOSARTAN [Concomitant]
     Active Substance: LOSARTAN
  9. PREGABALIN [Concomitant]
     Active Substance: PREGABALIN
  10. METOPROLOL SUCCINATE [Concomitant]
     Active Substance: METOPROLOL SUCCINATE
  11. TESTOSTERONE [Concomitant]
     Active Substance: TESTOSTERONE
  12. TOPIRAMATE [Concomitant]
     Active Substance: TOPIRAMATE
  13. ZOLPIDEM [Concomitant]
     Active Substance: ZOLPIDEM TARTRATE
  14. Ketamine/Amitriptyline/Lido/Gabo [Concomitant]
  15. BIO Function N [Concomitant]
  16. Bio-Ashwaghanda [Concomitant]
  17. COENZYME Q10 [Concomitant]
     Active Substance: DIETARY SUPPLEMENT\UBIDECARENONE
  18. UBIQUINOL [Concomitant]
     Active Substance: UBIQUINOL
  19. CORTIVIVE [Concomitant]
  20. PRASTERONE [Concomitant]
     Active Substance: PRASTERONE
  21. DIM Detox [Concomitant]
  22. NeuroSyn [Concomitant]
  23. One Multivitamin [Concomitant]
  24. Orchex [Concomitant]
  25. Riboflavin-5-Phosphate [Concomitant]
  26. Simplex M [Concomitant]
  27. TRIBULUS [Concomitant]
  28. Vital Vitamin C [Concomitant]
  29. Vista One Membrane Regeneration [Concomitant]
  30. Vista Two Membrane Regeneration [Concomitant]
  31. Ortho Biotic Dietary Supplement [Concomitant]
  32. SACCHAROMYCES CEREVISIAE [Concomitant]
     Active Substance: SACCHAROMYCES CEREVISIAE
  33. Vitamin D3 Balance [Concomitant]
  34. Immuititone Plus [Concomitant]
  35. Zinc 30 [Concomitant]
  36. N-Acetyl-L-Cysteine (glut precursor) [Concomitant]
  37. MARINE MAGNESIUM [Concomitant]
  38. Saffrosun (Vitamin B12) [Concomitant]
  39. MethylB12 w/ L-5-MTHF MethylFolate [Concomitant]
  40. Black Garlic [Concomitant]
  41. Quercetin + Nettles [Concomitant]
  42. Astragalus [Concomitant]
  43. Cats Claw [Concomitant]
  44. Red Beet Soluble Crystals [Concomitant]
  45. Glycinate [Concomitant]
  46. Collagen Peptides [Concomitant]
  47. IAG [Concomitant]
  48. LEVOCARNITINE [Concomitant]
     Active Substance: LEVOCARNITINE
  49. DIMETHYL SULFONE [Concomitant]
     Active Substance: DIMETHYL SULFONE
  50. Optimal Protein [Concomitant]
  51. Bitter Melon [Concomitant]
  52. ALPHA LIPOIC ACID [Concomitant]
     Active Substance: .ALPHA.-LIPOIC ACID
  53. Cinnamon Berberine [Concomitant]
  54. FISH OIL [Concomitant]
     Active Substance: FISH OIL
  55. Glutathione Force [Concomitant]
  56. CHOLINE [Concomitant]
     Active Substance: CHOLINE
  57. DIETARY SUPPLEMENT [Concomitant]
     Active Substance: DIETARY SUPPLEMENT
  58. Bio-Ae-Mulsion Forte [Concomitant]
  59. MIRALAX [Concomitant]
     Active Substance: POLYETHYLENE GLYCOL 3350

REACTIONS (6)
  - Oral surgery [None]
  - Tooth disorder [None]
  - Tooth fracture [None]
  - Small fibre neuropathy [None]
  - Pain [None]
  - Dental caries [None]

NARRATIVE: CASE EVENT DATE: 20211209
